FAERS Safety Report 17995874 (Version 14)
Quarter: 2021Q1

REPORT INFORMATION
  Report Type: Spontaneous
  Country: JP (occurrence: JP)
  Receive Date: 20200708
  Receipt Date: 20210331
  Transmission Date: 20210419
  Serious: Yes (Hospitalization, Other)
  Sender: FDA-Public Use
  Company Number: JP-PFIZER INC-2020260037

PATIENT
  Age: 63 Year
  Sex: Male

DRUGS (5)
  1. MEKTOVI [Suspect]
     Active Substance: BINIMETINIB
     Indication: MALIGNANT MELANOMA
     Dosage: 45 MG, DAILY
     Route: 048
     Dates: start: 20200310, end: 2020
  2. MEKTOVI [Suspect]
     Active Substance: BINIMETINIB
     Dosage: 15 MG, 2X/DAY (Q12H)
     Route: 048
     Dates: start: 2020
  3. BRAFTOVI [Suspect]
     Active Substance: ENCORAFENIB
     Indication: MALIGNANT MELANOMA
     Dosage: 450 MG, DAILY
     Route: 048
     Dates: start: 20200310, end: 2020
  4. BRAFTOVI [Suspect]
     Active Substance: ENCORAFENIB
     Dosage: 200 MG, DAILY (EVERYDAY)
     Route: 048
     Dates: start: 2020
  5. OPDIVO [Suspect]
     Active Substance: NIVOLUMAB
     Indication: MALIGNANT MELANOMA
     Dosage: 240 MG, CYCLIC(Q2W)
     Route: 041
     Dates: start: 20200218, end: 20200218

REACTIONS (4)
  - Decreased appetite [Recovered/Resolved]
  - Drug eruption [Recovering/Resolving]
  - Drug eruption [Recovered/Resolved]
  - Hepatic function abnormal [Recovering/Resolving]

NARRATIVE: CASE EVENT DATE: 20200225
